FAERS Safety Report 9320523 (Version 1)
Quarter: 2013Q2

REPORT INFORMATION
  Report Type: Spontaneous
  Country: MY (occurrence: MY)
  Receive Date: 20130531
  Receipt Date: 20130531
  Transmission Date: 20140414
  Serious: Yes (Other)
  Sender: FDA-Public Use
  Company Number: MY-009507513-1305MYS013404

PATIENT
  Age: 69 Year
  Sex: Female

DRUGS (1)
  1. FOSAMAX PLUS [Suspect]
     Indication: OSTEOPOROSIS
     Dosage: UNK, QW
     Route: 048
     Dates: start: 2003

REACTIONS (3)
  - Femur fracture [Unknown]
  - Joint arthroplasty [Unknown]
  - Stress fracture [Recovered/Resolved]
